FAERS Safety Report 24038958 (Version 1)
Quarter: 2024Q3

REPORT INFORMATION
  Report Type: Spontaneous
  Country: US (occurrence: US)
  Receive Date: 20240702
  Receipt Date: 20240702
  Transmission Date: 20241017
  Serious: Yes (Other)
  Sender: DR REDDYS
  Company Number: None

PATIENT
  Age: 38 Year
  Sex: Female

DRUGS (3)
  1. CLOZAPINE [Suspect]
     Active Substance: CLOZAPINE
     Indication: Mania
     Dosage: D12: 225 MG
  2. CLOZAPINE [Suspect]
     Active Substance: CLOZAPINE
     Dosage: D8: 200 MG
  3. CLOZAPINE [Suspect]
     Active Substance: CLOZAPINE
     Dosage: CLOZAPINE STARTING DOSE; CLOZAPINE TITRATION RATE (AVERAGED) 25MG/DAY

REACTIONS (1)
  - Myocarditis [Unknown]
